FAERS Safety Report 19593862 (Version 1)
Quarter: 2021Q3

REPORT INFORMATION
  Report Type: Spontaneous
  Country: SE (occurrence: SE)
  Receive Date: 20210722
  Receipt Date: 20210722
  Transmission Date: 20211014
  Serious: Yes (Disabling)
  Sender: FDA-Public Use
  Company Number: SE-MYLANLABS-2021M1043438

PATIENT
  Age: 56 Year
  Sex: Female
  Weight: 54 kg

DRUGS (3)
  1. METOPROLOL. [Suspect]
     Active Substance: METOPROLOL
     Indication: ARRHYTHMIA
     Dosage: 25 ? 200 MG
     Dates: start: 2012
  2. METOPROLOL. [Suspect]
     Active Substance: METOPROLOL
     Indication: HYPERTENSION
     Dosage: UNK
  3. CANDESARTAN CILEXETIL. [Concomitant]
     Active Substance: CANDESARTAN CILEXETIL
     Dosage: UNK

REACTIONS (2)
  - Lichen sclerosus [Recovered/Resolved with Sequelae]
  - Skin irritation [Recovered/Resolved with Sequelae]

NARRATIVE: CASE EVENT DATE: 2017
